FAERS Safety Report 15196579 (Version 1)
Quarter: 2018Q3

REPORT INFORMATION
  Report Type: Spontaneous
  Country: US (occurrence: US)
  Receive Date: 20180626
  Receipt Date: 20180626
  Transmission Date: 20181010
  Serious: No
  Sender: FDA-Public Use
  Company Number: None

PATIENT
  Age: 61 Year
  Sex: Female

DRUGS (1)
  1. PRALUENT [Suspect]
     Active Substance: ALIROCUMAB
     Dosage: ?          OTHER FREQUENCY:EVERY 14 DAYS ;?
     Route: 048
     Dates: start: 20180518, end: 20180622

REACTIONS (9)
  - Insomnia [None]
  - Skin lesion [None]
  - Dyspnoea [None]
  - Chest discomfort [None]
  - Pollakiuria [None]
  - Arthralgia [None]
  - Rash [None]
  - Muscular weakness [None]
  - Myalgia [None]

NARRATIVE: CASE EVENT DATE: 20180518
